FAERS Safety Report 13666698 (Version 1)
Quarter: 2017Q2

REPORT INFORMATION
  Report Type: Spontaneous
  Country: US (occurrence: US)
  Receive Date: 20170619
  Receipt Date: 20170619
  Transmission Date: 20170830
  Serious: Yes (Hospitalization)
  Sender: FDA-Public Use
  Company Number: US-ROCHE-1497772

PATIENT
  Sex: Male
  Weight: 102.15 kg

DRUGS (1)
  1. XELODA [Suspect]
     Active Substance: CAPECITABINE
     Indication: COLON CANCER
     Route: 048
     Dates: start: 20140529, end: 20141008

REACTIONS (4)
  - Fall [Unknown]
  - Cerebrovascular accident [Unknown]
  - Asthenia [Unknown]
  - Peripheral swelling [Unknown]
